FAERS Safety Report 9170633 (Version 1)
Quarter: 2013Q1

REPORT INFORMATION
  Report Type: Spontaneous
  Country: US (occurrence: US)
  Receive Date: 20130319
  Receipt Date: 20130319
  Transmission Date: 20140127
  Serious: No
  Sender: FDA-Public Use
  Company Number: US-BAYER-2013-015336

PATIENT
  Age: 39 Year
  Sex: Female

DRUGS (3)
  1. CIPRO [Suspect]
  2. HUMIRA [Suspect]
     Indication: CROHN^S DISEASE
     Dosage: 160 MG, UNK
     Dates: start: 20121221
  3. HUMIRA [Suspect]
     Indication: CROHN^S DISEASE
     Dosage: 80 MG, UNK
     Dates: start: 20120104

REACTIONS (4)
  - Drug interaction [None]
  - Injection site mass [None]
  - Device malfunction [None]
  - Incorrect dose administered [None]
